FAERS Safety Report 22161316 (Version 1)
Quarter: 2023Q1

REPORT INFORMATION
  Report Type: Spontaneous
  Country: IT (occurrence: None)
  Receive Date: 20230331
  Receipt Date: 20230331
  Transmission Date: 20230417
  Serious: Yes (Hospitalization)
  Sender: FDA-Public Use
  Company Number: 2023A075855

PATIENT
  Age: 86 Year
  Sex: Female

DRUGS (6)
  1. OMEPRAZOLE [Suspect]
     Active Substance: OMEPRAZOLE
  2. BROMAZEPAM [Suspect]
     Active Substance: BROMAZEPAM
  3. GLICLAZIDE [Suspect]
     Active Substance: GLICLAZIDE
  4. MIRTAZAPINE [Suspect]
     Active Substance: MIRTAZAPINE
  5. METFORMIN HYDROCHLORIDE [Suspect]
     Active Substance: METFORMIN HYDROCHLORIDE
  6. ASCRIPTIN [Suspect]
     Active Substance: ASPIRIN

REACTIONS (2)
  - Syncope [Recovering/Resolving]
  - Disorganised speech [Recovering/Resolving]

NARRATIVE: CASE EVENT DATE: 20221101
